FAERS Safety Report 20908268 (Version 1)
Quarter: 2022Q2

REPORT INFORMATION
  Report Type: Spontaneous
  Country: GB (occurrence: GB)
  Receive Date: 20220602
  Receipt Date: 20220602
  Transmission Date: 20220721
  Serious: Yes (Hospitalization, Other)
  Sender: FDA-Public Use
  Company Number: GB-MHRA-INP58586CF5-2B2E-4FC5-BC28-81AE68C929FA

PATIENT
  Age: 51 Year
  Sex: Male
  Weight: 54.2 kg

DRUGS (13)
  1. PREGABALIN [Suspect]
     Active Substance: PREGABALIN
     Indication: Product used for unknown indication
     Dosage: UNK
     Route: 048
  2. AMITRIPTYLINE [Concomitant]
     Active Substance: AMITRIPTYLINE
     Indication: Product used for unknown indication
     Dosage: ONE AT NIGHT -INCREASING TO 2 AT NIGHT AFTER 1 WEEK IF NEEDED
     Route: 065
     Dates: start: 20220311
  3. ASPIRIN [Concomitant]
     Active Substance: ASPIRIN
     Indication: Product used for unknown indication
     Dosage: ONE TO BE TAKEN DAILY TO HELP PREVENT HEART ATTACKS AND STROKES.
     Route: 065
     Dates: start: 20220311
  4. CODEINE [Concomitant]
     Active Substance: CODEINE
     Indication: Product used for unknown indication
     Dosage: ONE OR TWO TABLETS TO BE TAKEN EVERY FOUR HOURS AS DIRECTED
     Route: 065
     Dates: start: 20220516
  5. CODEINE [Concomitant]
     Active Substance: CODEINE
     Dosage: ONE OR TWO TABLETS TO BE TAKEN EVERY FOUR HOURS AS DIRECTED
     Route: 065
     Dates: start: 20220311
  6. CODEINE [Concomitant]
     Active Substance: CODEINE
     Dosage: ONE OR TWO TABLETS TO BE TAKEN EVERY FOUR HOURS AS DIRECTED
     Route: 065
     Dates: start: 20220426
  7. GABAPENTIN [Concomitant]
     Active Substance: GABAPENTIN
     Indication: Product used for unknown indication
     Dosage: 1 EVERY DAY FOR A WEEK -THEN 1 TWICE A DAY FOR A WEEK -THEN 1 THREE TIMES A DAY TO CONTINUE
     Route: 065
     Dates: start: 20220331
  8. LANSOPRAZOLE [Concomitant]
     Active Substance: LANSOPRAZOLE
     Indication: Product used for unknown indication
     Dosage: TAKE ONE  CAPSULE DAILY NOTES FOR PATIENT: THIS IS THE SAME DOSE AS THE SACHETS IN A CAPSULE
     Route: 065
     Dates: start: 20220311
  9. NAPROXEN [Concomitant]
     Active Substance: NAPROXEN
     Indication: Product used for unknown indication
     Dosage: TWO TO BE TAKEN TWICE A DAY WHEN REQUIRED -TAKE WITH FOOD
     Route: 065
     Dates: start: 20220516
  10. NAPROXEN [Concomitant]
     Active Substance: NAPROXEN
     Dosage: ONE OR TWO TO BE TAKEN TWICE A DAY WHEN REQUIRED -TAKE WITH FOOD
     Route: 065
     Dates: start: 20220311
  11. NAPROXEN [Concomitant]
     Active Substance: NAPROXEN
     Dosage: ONE OR TWO TO BE TAKEN TWICE A DAY WHEN REQUIRED -TAKE WITH FOOD
     Route: 065
     Dates: start: 20220426
  12. ACETAMINOPHEN [Concomitant]
     Active Substance: ACETAMINOPHEN
     Indication: Product used for unknown indication
     Dosage: 1 OR 2 TABLETS TO BE TAKEN 3 OR 4 TIMES A DAY
     Route: 065
     Dates: start: 20220516
  13. THIAMINE [Concomitant]
     Active Substance: THIAMINE
     Indication: Product used for unknown indication
     Dosage: ONE TO BE TAKEN TWICE A DAY
     Route: 065
     Dates: start: 20220311

REACTIONS (1)
  - Adverse drug reaction [Recovered/Resolved]

NARRATIVE: CASE EVENT DATE: 20220509
